FAERS Safety Report 9874624 (Version 2)
Quarter: 2014Q1

REPORT INFORMATION
  Report Type: Spontaneous
  Country: ES (occurrence: ES)
  Receive Date: 20140206
  Receipt Date: 20140303
  Transmission Date: 20141002
  Serious: Yes (Other)
  Sender: FDA-Public Use
  Company Number: ES-AMGEN-ESPSP2014007343

PATIENT
  Sex: 0

DRUGS (1)
  1. MIMPARA [Suspect]
     Indication: HYPERPARATHYROIDISM SECONDARY
     Route: 065

REACTIONS (3)
  - Electrocardiogram QT prolonged [Unknown]
  - Electrocardiogram RR interval prolonged [Unknown]
  - Hypocalcaemia [Unknown]
